FAERS Safety Report 9202729 (Version 1)
Quarter: 2013Q2

REPORT INFORMATION
  Report Type: Spontaneous
  Country: CH (occurrence: CH)
  Receive Date: 20130401
  Receipt Date: 20130401
  Transmission Date: 20140414
  Serious: Yes (Other)
  Sender: FDA-Public Use
  Company Number: CH-PFIZER INC-2013099984

PATIENT
  Age: 73 Year
  Sex: Female
  Weight: 49 kg

DRUGS (5)
  1. SORTIS [Suspect]
     Indication: TRANSIENT ISCHAEMIC ATTACK
     Dosage: 80 MG, 1X/DAY
     Route: 048
     Dates: start: 200907, end: 20121019
  2. SORTIS [Suspect]
     Indication: ARTERIAL STENT INSERTION
  3. SEVIKAR [Concomitant]
     Indication: ESSENTIAL HYPERTENSION
     Dosage: 5MG / 40 MG, 1X/DAY
     Route: 048
     Dates: start: 2010
  4. ASPIRIN CARDIO [Concomitant]
     Indication: TRANSIENT ISCHAEMIC ATTACK
     Dosage: 100 MG, 1X/DAY
     Route: 048
     Dates: start: 2009
  5. ASPIRIN CARDIO [Concomitant]
     Indication: ARTERIAL STENT INSERTION

REACTIONS (3)
  - Myositis [Recovering/Resolving]
  - Myalgia [Recovering/Resolving]
  - Myopathy [Recovering/Resolving]
